FAERS Safety Report 7923860-6 (Version None)
Quarter: 2011Q4

REPORT INFORMATION
  Report Type: 
  Country: None (occurrence: None)
  Receive Date: 20111117
  Receipt Date: 20110209
  Transmission Date: 20120403
  Serious: Yes (Hospitalization, Other)
  Sender: FDA-Public Use
  Company Number: US-AMGEN-USASP2011007732

PATIENT
  Age: 70 Year
  Sex: Female

DRUGS (1)
  1. ENBREL [Suspect]
     Indication: RHEUMATOID ARTHRITIS
     Dosage: 25 MG, 2 TIMES/WK
     Dates: start: 19990209

REACTIONS (9)
  - COLITIS [None]
  - RHEUMATOID ARTHRITIS [None]
  - DIVERTICULITIS [None]
  - OEDEMA PERIPHERAL [None]
  - INJECTION SITE PAIN [None]
  - DISTURBANCE IN ATTENTION [None]
  - SKIN LESION [None]
  - URTICARIA [None]
  - RASH [None]
